FAERS Safety Report 25673442 (Version 1)
Quarter: 2025Q3

REPORT INFORMATION
  Report Type: Spontaneous
  Country: US (occurrence: US)
  Receive Date: 20250813
  Receipt Date: 20250813
  Transmission Date: 20251021
  Serious: Yes (Hospitalization, Other)
  Sender: NOVITIUM PHARMA
  Company Number: US-NOVITIUMPHARMA-2025USNVP01992

PATIENT
  Age: 73 Year
  Sex: Male

DRUGS (7)
  1. PREDNISONE [Suspect]
     Active Substance: PREDNISONE
     Indication: Pneumonitis
  2. PREDNISONE [Suspect]
     Active Substance: PREDNISONE
  3. PEMBROLIZUMAB [Concomitant]
     Active Substance: PEMBROLIZUMAB
     Indication: Metastatic renal cell carcinoma
  4. AXITINIB [Concomitant]
     Active Substance: AXITINIB
     Indication: Atrial fibrillation
  5. AXITINIB [Concomitant]
     Active Substance: AXITINIB
     Indication: Hypertension
  6. AXITINIB [Concomitant]
     Active Substance: AXITINIB
     Indication: Coronary artery disease
  7. AXITINIB [Concomitant]
     Active Substance: AXITINIB
     Indication: Metastatic renal cell carcinoma

REACTIONS (2)
  - Pneumonia [Unknown]
  - Treatment failure [Unknown]
